FAERS Safety Report 16861259 (Version 1)
Quarter: 2019Q3

REPORT INFORMATION
  Report Type: Spontaneous
  Country: US (occurrence: US)
  Receive Date: 20190805
  Receipt Date: 20190805
  Transmission Date: 20191005
  Serious: Yes (Hospitalization)
  Sender: FDA-Public Use
  Company Number: None

PATIENT
  Sex: Female

DRUGS (1)
  1. RIVAROXIBAN [Suspect]
     Active Substance: RIVAROXABAN

REACTIONS (5)
  - Nausea [None]
  - Vomiting [None]
  - Photosensitivity reaction [None]
  - Headache [None]
  - Drug level above therapeutic [None]
